FAERS Safety Report 14487484 (Version 2)
Quarter: 2018Q1

REPORT INFORMATION
  Report Type: Report from Study
  Country: IL (occurrence: IL)
  Receive Date: 20180205
  Receipt Date: 20180214
  Transmission Date: 20180509
  Serious: Yes (Hospitalization)
  Sender: FDA-Public Use
  Company Number: PHHY2017IL030123

PATIENT
  Age: 54 Year
  Sex: Female

DRUGS (3)
  1. AFINITOR [Suspect]
     Active Substance: EVEROLIMUS
     Indication: BREAST CANCER
     Dosage: 10 MG, QD
     Route: 048
     Dates: start: 20170126, end: 20170218
  2. AFINITOR [Suspect]
     Active Substance: EVEROLIMUS
     Dosage: 10 MG, QD
     Route: 048
     Dates: start: 20170308, end: 20170518
  3. AFINITOR [Suspect]
     Active Substance: EVEROLIMUS
     Dosage: 10 MG, QD
     Route: 048
     Dates: start: 20170602, end: 20180126

REACTIONS (14)
  - Blister [Not Recovered/Not Resolved]
  - Asthenia [Recovering/Resolving]
  - Wound [Recovered/Resolved]
  - Dyspnoea [Unknown]
  - Oral pain [Recovering/Resolving]
  - Rash erythematous [Recovered/Resolved]
  - Pulmonary oedema [Recovering/Resolving]
  - Wound [Not Recovered/Not Resolved]
  - Asthma [Not Recovered/Not Resolved]
  - Hot flush [Not Recovered/Not Resolved]
  - Pruritus [Recovered/Resolved]
  - Erythema [Not Recovered/Not Resolved]
  - Syncope [Recovering/Resolving]
  - Stomatitis [Recovered/Resolved]

NARRATIVE: CASE EVENT DATE: 20170329
